FAERS Safety Report 5503988-0 (Version None)
Quarter: 2007Q4

REPORT INFORMATION
  Report Type: 
  Country: None (occurrence: None)
  Receive Date: 20071101
  Receipt Date: 20071015
  Transmission Date: 20080405
  Serious: Yes (Disabling)
  Sender: FDA-Public Use
  Company Number: US-ROCHE-528131

PATIENT
  Age: 52 Year

DRUGS (1)
  1. INTERFERON ALFA [Suspect]
     Route: 065

REACTIONS (1)
  - PARKINSONISM [None]
